FAERS Safety Report 12131389 (Version 1)
Quarter: 2016Q1

REPORT INFORMATION
  Report Type: Spontaneous
  Country: US (occurrence: None)
  Receive Date: 20160229
  Receipt Date: 20160229
  Transmission Date: 20160526
  Serious: Yes (Hospitalization)
  Sender: FDA-Public Use
  Company Number: None

PATIENT
  Age: 69 Year
  Sex: Male
  Weight: 114.5 kg

DRUGS (3)
  1. METOPROLOL. [Suspect]
     Active Substance: METOPROLOL
     Indication: CARDIOVASCULAR DISORDER
     Route: 048
     Dates: start: 20051117, end: 20151217
  2. METOPROLOL. [Suspect]
     Active Substance: METOPROLOL
     Indication: HYPERTENSION
     Route: 048
     Dates: start: 20051117, end: 20151217
  3. DILTIAZEM [Suspect]
     Active Substance: DILTIAZEM
     Indication: HYPERTENSION
     Dosage: 360 MG  AM PO
     Route: 048
     Dates: start: 20140925, end: 20151217

REACTIONS (1)
  - Bradycardia [None]

NARRATIVE: CASE EVENT DATE: 20151217
